FAERS Safety Report 19367453 (Version 1)
Quarter: 2021Q2

REPORT INFORMATION
  Report Type: Spontaneous
  Country: US (occurrence: US)
  Receive Date: 20210602
  Receipt Date: 20210602
  Transmission Date: 20210717
  Serious: No
  Sender: FDA-Public Use
  Company Number: US-ROCHE-2804186

PATIENT
  Age: 25 Year

DRUGS (1)
  1. EVRYSDI [Suspect]
     Active Substance: RISDIPLAM
     Indication: PRODUCT USED FOR UNKNOWN INDICATION
     Dosage: FORM STRENGTH: 60MG/80ML
     Route: 065

REACTIONS (2)
  - No adverse event [Unknown]
  - Product leakage [Unknown]

NARRATIVE: CASE EVENT DATE: 20210401
